FAERS Safety Report 6180822-X (Version None)
Quarter: 2009Q2

REPORT INFORMATION
  Report Type: 
  Country: None (occurrence: None)
  Receive Date: 20090506
  Receipt Date: 20090428
  Transmission Date: 20091009
  Serious: Yes (Hospitalization, Other)
  Sender: FDA-Public Use
  Company Number: HU-JNJFOC-20080606235

PATIENT
  Sex: Female
  Weight: 70 kg

DRUGS (15)
  1. GOLIMUMAB [Suspect]
     Dosage: WEEK 36
     Route: 042
  2. GOLIMUMAB [Suspect]
     Dosage: WEEK 24
     Route: 042
  3. GOLIMUMAB [Suspect]
     Indication: RHEUMATOID ARTHRITIS
     Dosage: WEEK 16
     Route: 042
  4. PLACEBO [Suspect]
     Dosage: WEEK 12
     Route: 042
  5. PLACEBO [Suspect]
     Indication: RHEUMATOID ARTHRITIS
     Dosage: WEEK 0
     Route: 042
  6. METHOTREXATE [Suspect]
     Route: 048
  7. METHOTREXATE [Suspect]
     Route: 048
  8. METHOTREXATE [Suspect]
     Route: 048
  9. METHOTREXATE [Suspect]
     Indication: RHEUMATOID ARTHRITIS
     Route: 048
  10. BRINALDIX [Concomitant]
     Route: 048
  11. FOLACID [Concomitant]
     Route: 048
  12. MEDROL [Concomitant]
     Indication: RHEUMATOID ARTHRITIS
     Route: 048
  13. MELOXICAM [Concomitant]
     Indication: RHEUMATOID ARTHRITIS
     Route: 048
  14. QUAMATEL [Concomitant]
     Route: 048
  15. KALDYUM [Concomitant]
     Route: 048

REACTIONS (1)
  - BLADDER CANCER [None]
